FAERS Safety Report 17924673 (Version 7)
Quarter: 2022Q1

REPORT INFORMATION
  Report Type: Report from Study
  Country: ES (occurrence: ES)
  Receive Date: 20200622
  Receipt Date: 20220325
  Transmission Date: 20220423
  Serious: Yes (Death)
  Sender: FDA-Public Use
  Company Number: ES-PFIZER INC-2020233061

PATIENT
  Age: 78 Year
  Sex: Male

DRUGS (8)
  1. ENZALUTAMIDE [Suspect]
     Active Substance: ENZALUTAMIDE
     Indication: Hormone-refractory prostate cancer
     Route: 048
     Dates: start: 20200330, end: 20200613
  2. TALAZOPARIB [Suspect]
     Active Substance: TALAZOPARIB
     Indication: Hormone-refractory prostate cancer
     Dosage: UNK UNK, CYCLIC
     Route: 048
     Dates: start: 20200330, end: 20200613
  3. ELIGARD [Concomitant]
     Active Substance: LEUPROLIDE ACETATE
     Indication: Neoplasm malignant
     Dosage: 45 MG (REPORTED AS MOST RECENT DOSE), TWICE A YEAR
     Route: 030
     Dates: start: 20191120
  4. TAMSULOSIN [Concomitant]
     Active Substance: TAMSULOSIN
     Indication: Neoplasm malignant
     Dosage: 0.4 MG, ONCE DAILY (REPORTED AS MOST RECENT DOSE)
     Route: 048
     Dates: start: 2008
  5. ATORVASTATIN [Concomitant]
     Active Substance: ATORVASTATIN
     Indication: Hypercholesterolaemia
     Dosage: 40 MG, ONCE DAILY (REPORTED AS MOST RECENT DOSE)
     Route: 048
     Dates: start: 2008
  6. ASPIRIN [Concomitant]
     Active Substance: ASPIRIN
     Indication: Hypertension
     Dosage: 100 MG, ONCE DAILY (REPORTED AS MOST RECENT DOSE)
     Route: 048
     Dates: start: 2008
  7. PANTOPRAZOLE [Concomitant]
     Active Substance: PANTOPRAZOLE
     Indication: Gastritis prophylaxis
     Dosage: 20 MG, ONCE DAILY (REPORTED AS MOST RECENT DOSE)
     Route: 048
     Dates: start: 2008
  8. GLYCOPYRRONIUM\INDACATEROL [Concomitant]
     Active Substance: GLYCOPYRRONIUM\INDACATEROL
     Indication: Chronic obstructive pulmonary disease
     Dosage: 1 DF, DAILY (1 CAPSULE, DAILY) (REPORTED AS MOST RECENT DOSE)
     Route: 055
     Dates: start: 2008

REACTIONS (1)
  - Sudden death [Fatal]

NARRATIVE: CASE EVENT DATE: 20200613
